FAERS Safety Report 24211947 (Version 3)
Quarter: 2024Q4

REPORT INFORMATION
  Report Type: Report from Study
  Country: US (occurrence: US)
  Receive Date: 20240814
  Receipt Date: 20241114
  Transmission Date: 20250114
  Serious: Yes (Hospitalization, Other)
  Sender: SUNOVION
  Company Number: US-SUMITOMO PHARMA SWITZERLAND GMBH-2024SPA000940

PATIENT

DRUGS (3)
  1. ORGOVYX [Suspect]
     Active Substance: RELUGOLIX
     Indication: Prostate cancer
     Dosage: 360 MG
     Route: 048
     Dates: start: 20230405, end: 20230405
  2. ORGOVYX [Suspect]
     Active Substance: RELUGOLIX
     Dosage: 120 MG, QD
     Route: 048
     Dates: start: 20230406
  3. NUBEQA [Concomitant]
     Active Substance: DAROLUTAMIDE
     Dosage: UNK
     Route: 065

REACTIONS (6)
  - Sciatic nerve injury [Unknown]
  - Varicose vein [Recovered/Resolved]
  - Nephrolithiasis [Unknown]
  - Rash pruritic [Recovering/Resolving]
  - Rotator cuff syndrome [Unknown]
  - Constipation [Unknown]
